FAERS Safety Report 24091290 (Version 1)
Quarter: 2024Q3

REPORT INFORMATION
  Report Type: Report from Study
  Country: IT (occurrence: IT)
  Receive Date: 20240715
  Receipt Date: 20240715
  Transmission Date: 20241017
  Serious: Yes (Other)
  Sender: TEVA
  Company Number: None

PATIENT
  Age: 1 Year
  Sex: Female
  Weight: 9 kg

DRUGS (3)
  1. CISPLATIN [Suspect]
     Active Substance: CISPLATIN
     Indication: Teratoma
     Dosage: CISPLATIN TEVA ITALY
     Route: 042
     Dates: start: 20230607, end: 20230610
  2. BLEOMYCIN SULFATE [Suspect]
     Active Substance: BLEOMYCIN SULFATE
     Indication: Teratoma
     Dosage: 4.50 MG/DAY
     Route: 042
     Dates: start: 20230608, end: 20230608
  3. ETOPOSIDE [Suspect]
     Active Substance: ETOPOSIDE
     Indication: Teratoma
     Dosage: 30 MG/DAY , ETOPOSIDE SANDOZ
     Route: 042
     Dates: start: 20230607, end: 20230610

REACTIONS (3)
  - Neutropenia [Recovered/Resolved]
  - Anaemia [Recovered/Resolved]
  - Leukopenia [Recovered/Resolved]

NARRATIVE: CASE EVENT DATE: 20230610
